FAERS Safety Report 10778518 (Version 2)
Quarter: 2015Q1

REPORT INFORMATION
  Report Type: Spontaneous
  Country: US (occurrence: US)
  Receive Date: 20150210
  Receipt Date: 20150220
  Transmission Date: 20150721
  Serious: Yes (Hospitalization, Other)
  Sender: FDA-Public Use
  Company Number: US-AMGEN-USASP2015010691

PATIENT
  Age: 77 Year
  Sex: Female

DRUGS (8)
  1. VITAMIN D                          /00107901/ [Concomitant]
     Active Substance: ERGOCALCIFEROL
  2. SINGULAIR [Concomitant]
     Active Substance: MONTELUKAST SODIUM
     Indication: ASTHMA
  3. ASPIRIN                            /00002701/ [Concomitant]
     Active Substance: ASPIRIN
  4. ULORIC [Concomitant]
     Active Substance: FEBUXOSTAT
  5. CALCIUM [Concomitant]
     Active Substance: CALCIUM
  6. PROLIA [Suspect]
     Active Substance: DENOSUMAB
     Indication: PRODUCT USED FOR UNKNOWN INDICATION
     Dosage: UNK
     Route: 065
     Dates: start: 201501
  7. XALATAN [Concomitant]
     Active Substance: LATANOPROST
     Indication: GLAUCOMA
  8. FLOVENT [Concomitant]
     Active Substance: FLUTICASONE PROPIONATE
     Indication: ASTHMA

REACTIONS (11)
  - Malaise [Not Recovered/Not Resolved]
  - Atrial fibrillation [Not Recovered/Not Resolved]
  - Pruritus generalised [Not Recovered/Not Resolved]
  - Musculoskeletal disorder [Not Recovered/Not Resolved]
  - Nausea [Not Recovered/Not Resolved]
  - Anaphylactic reaction [Unknown]
  - Feeding disorder [Not Recovered/Not Resolved]
  - Urticaria [Not Recovered/Not Resolved]
  - Gait disturbance [Not Recovered/Not Resolved]
  - Back pain [Not Recovered/Not Resolved]
  - Ill-defined disorder [Not Recovered/Not Resolved]

NARRATIVE: CASE EVENT DATE: 2015
